FAERS Safety Report 17617098 (Version 1)
Quarter: 2020Q2

REPORT INFORMATION
  Report Type: Spontaneous
  Country: US (occurrence: US)
  Receive Date: 20200402
  Receipt Date: 20200402
  Transmission Date: 20200713
  Serious: No
  Sender: FDA-Public Use
  Company Number: US-SA-2019SA080653

PATIENT
  Age: 84 Year
  Sex: Female

DRUGS (1)
  1. DUPIXENT [Suspect]
     Active Substance: DUPILUMAB
     Indication: ECZEMA
     Dosage: 300 MG, QOW
     Route: 058
     Dates: start: 20190101, end: 20191101

REACTIONS (6)
  - Skin atrophy [Unknown]
  - Unevaluable event [Unknown]
  - Drug ineffective [Unknown]
  - Skin exfoliation [Unknown]
  - Dry skin [Unknown]
  - Eczema [Unknown]
